FAERS Safety Report 4928794-7 (Version None)
Quarter: 2006Q1

REPORT INFORMATION
  Report Type: 
  Country: None (occurrence: None)
  Receive Date: 20060227
  Receipt Date: 20060227
  Transmission Date: 20060701
  Serious: Yes (Hospitalization)
  Sender: FDA-Public Use
  Company Number: None

PATIENT
  Age: 61 Year
  Sex: Female

DRUGS (2)
  1. SILDENAFIL [Suspect]
     Indication: CARDIAC FAILURE CONGESTIVE
     Dosage: 25 MG PO TID
     Route: 048
     Dates: start: 20050414
  2. SILDENAFIL [Suspect]
     Indication: PULMONARY HYPERTENSION
     Dosage: 25 MG PO TID
     Route: 048
     Dates: start: 20050414

REACTIONS (4)
  - DEHYDRATION [None]
  - DRUG TOXICITY [None]
  - FLANK PAIN [None]
  - RENAL FAILURE ACUTE [None]
